FAERS Safety Report 16228529 (Version 1)
Quarter: 2019Q2

REPORT INFORMATION
  Report Type: Spontaneous
  Country: US (occurrence: US)
  Receive Date: 20190422
  Receipt Date: 20190422
  Transmission Date: 20190711
  Serious: Yes (Death)
  Sender: FDA-Public Use
  Company Number: None

PATIENT
  Age: 78 Year
  Sex: Male
  Weight: 72.3 kg

DRUGS (1)
  1. ELIQUIS [Suspect]
     Active Substance: APIXABAN
     Indication: ATRIAL FIBRILLATION
     Route: 048

REACTIONS (5)
  - Cerebral haematoma [None]
  - Haemorrhagic stroke [None]
  - Thalamus haemorrhage [None]
  - Bradycardia [None]
  - Cerebral haemorrhage [None]

NARRATIVE: CASE EVENT DATE: 20190420
